FAERS Safety Report 4960257-5 (Version None)
Quarter: 2006Q2

REPORT INFORMATION
  Report Type: 
  Country: None (occurrence: None)
  Receive Date: 20060403
  Receipt Date: 20060324
  Transmission Date: 20061013
  Serious: Yes (Hospitalization, Disabling, Other)
  Sender: FDA-Public Use
  Company Number: GB-JNJFOC-20060205061

PATIENT
  Sex: Female
  Weight: 84 kg

DRUGS (16)
  1. REMICADE [Suspect]
     Indication: RHEUMATOID ARTHRITIS
     Route: 042
  2. TRAMADOL HCL [Suspect]
     Indication: DRUG USE FOR UNKNOWN INDICATION
     Route: 065
  3. DICLOFENAC [Concomitant]
     Indication: RHEUMATOID ARTHRITIS
     Route: 048
  4. FOLIC ACID [Concomitant]
     Indication: RHEUMATOID ARTHRITIS
     Route: 048
  5. LANSOPRAZOLE [Concomitant]
     Indication: RHEUMATOID ARTHRITIS
     Route: 065
  6. METHOTREXATE [Concomitant]
     Indication: RHEUMATOID ARTHRITIS
     Route: 048
  7. FOSAMAX [Concomitant]
     Route: 065
  8. CO CODAMOL [Concomitant]
     Route: 065
  9. CO CODAMOL [Concomitant]
     Route: 065
  10. CO CODAMOL [Concomitant]
     Route: 065
  11. CALCICHEW [Concomitant]
     Route: 065
  12. ARTHROTEC [Concomitant]
     Route: 065
  13. ARTHROTEC [Concomitant]
     Route: 065
  14. CO-PROXAMOL [Concomitant]
     Route: 065
  15. CO-PROXAMOL [Concomitant]
     Route: 065
  16. TEMAZEPAM [Concomitant]
     Route: 065

REACTIONS (1)
  - PERITONEAL TUBERCULOSIS [None]
